FAERS Safety Report 7991825-4 (Version None)
Quarter: 2011Q4

REPORT INFORMATION
  Report Type: 
  Country: None (occurrence: None)
  Receive Date: 20111219
  Receipt Date: 20111216
  Transmission Date: 20120403
  Serious: No
  Sender: FDA-Public Use
  Company Number: US-PFIZER INC-2011306822

PATIENT
  Sex: Male
  Weight: 66.2 kg

DRUGS (1)
  1. ZOLOFT [Suspect]
     Indication: OBSESSIVE-COMPULSIVE DISORDER
     Dosage: 50 MG, 1X/DAY
     Route: 048
     Dates: start: 20110825

REACTIONS (4)
  - MOUTH ULCERATION [None]
  - TONGUE ULCERATION [None]
  - APHTHOUS STOMATITIS [None]
  - ORAL DISORDER [None]
